FAERS Safety Report 5773652-1 (Version None)
Quarter: 2008Q2

REPORT INFORMATION
  Report Type: 
  Country: None (occurrence: None)
  Receive Date: 20080601
  Receipt Date: 20080326
  Transmission Date: 20081010
  Serious: No
  Sender: FDA-Public Use
  Company Number: US200803006220

PATIENT
  Age: 60 Year
  Sex: Male

DRUGS (8)
  1. BYETTA [Suspect]
     Indication: TYPE 2 DIABETES MELLITUS
     Dosage: 5 UG, 2/D, SUBCUTANEOUS ; 10 UG, 2/D, SUBCUTANEOUS
     Route: 058
     Dates: start: 20070101, end: 20080325
  2. BYETTA [Suspect]
     Indication: TYPE 2 DIABETES MELLITUS
     Dosage: 5 UG, 2/D, SUBCUTANEOUS ; 10 UG, 2/D, SUBCUTANEOUS
     Route: 058
     Dates: start: 20080325
  3. PLAVIX [Concomitant]
  4. ATENOLOL [Concomitant]
  5. ASPIRIN [Concomitant]
  6. CORTISONE (CORTISONE) [Concomitant]
  7. ACTOS [Concomitant]
  8. METFORMIN HCL [Concomitant]

REACTIONS (2)
  - INJECTION SITE BRUISING [None]
  - LUNG DISORDER [None]
